FAERS Safety Report 7313220-3 (Version None)
Quarter: 2011Q1

REPORT INFORMATION
  Report Type: 
  Country: None (occurrence: None)
  Receive Date: 20110225
  Receipt Date: 20110217
  Transmission Date: 20110831
  Serious: No
  Sender: FDA-Public Use
  Company Number: US-JNJFOC-20101208950

PATIENT
  Sex: Male
  Weight: 99.79 kg

DRUGS (20)
  1. FENTANYL-100 [Suspect]
     Route: 062
  2. FLEXERIL [Concomitant]
     Route: 048
  3. LACTULOSE [Concomitant]
     Indication: CONSTIPATION
     Route: 048
  4. FENTANYL-100 [Suspect]
     Indication: BACK PAIN
     Route: 062
  5. FENTANYL CITRATE [Suspect]
     Indication: BACK PAIN
     Route: 062
  6. FENTANYL-100 [Suspect]
     Route: 062
  7. LYRICA [Concomitant]
     Route: 048
  8. KLONOPIN [Concomitant]
     Indication: PAIN
     Route: 048
  9. FENTANYL-100 [Suspect]
     Indication: BACK PAIN
     Dosage: AS NEEDED
     Route: 062
  10. FENTANYL-100 [Suspect]
     Indication: PAIN IN EXTREMITY
     Dosage: AS NEEDED
     Route: 062
  11. FLEXERIL [Concomitant]
     Indication: PAIN
     Route: 048
  12. FENTANYL-100 [Suspect]
     Indication: ILL-DEFINED DISORDER
     Route: 062
  13. LYRICA [Concomitant]
     Indication: NEURALGIA
     Route: 048
  14. LIDOCAINE 5% [Concomitant]
     Indication: PAIN
     Route: 062
  15. ALDACTONE [Concomitant]
     Indication: LIVER DISORDER
     Route: 048
  16. UNKNOWN MEDICATION [Concomitant]
     Indication: URINARY TRACT DISORDER
     Route: 048
  17. FENTANYL CITRATE [Suspect]
     Indication: PAIN IN EXTREMITY
     Route: 062
  18. FENTANYL-100 [Suspect]
     Route: 062
  19. FENTANYL-100 [Suspect]
     Dosage: AS NEEDED
     Route: 062
  20. TRAZODONE HCL [Concomitant]
     Indication: SLEEP DISORDER
     Route: 048

REACTIONS (8)
  - WEIGHT DECREASED [None]
  - GAIT DISTURBANCE [None]
  - INAPPROPRIATE SCHEDULE OF DRUG ADMINISTRATION [None]
  - FALL [None]
  - DRUG INEFFECTIVE [None]
  - DRUG PRESCRIBING ERROR [None]
  - DERMATITIS CONTACT [None]
  - APPLICATION SITE ERYTHEMA [None]
